FAERS Safety Report 16727336 (Version 6)
Quarter: 2021Q1

REPORT INFORMATION
  Report Type: Spontaneous
  Country: US (occurrence: US)
  Receive Date: 20190822
  Receipt Date: 20210325
  Transmission Date: 20210419
  Serious: Yes (Other)
  Sender: FDA-Public Use
  Company Number: US-SA-2019SA228583

PATIENT
  Age: 47 Year
  Sex: Female

DRUGS (2)
  1. AUBAGIO [Suspect]
     Active Substance: TERIFLUNOMIDE
     Indication: MULTIPLE SCLEROSIS
     Dosage: 7 MG, QD
     Route: 048
     Dates: start: 20190702, end: 201908
  2. AUBAGIO [Suspect]
     Active Substance: TERIFLUNOMIDE
     Dosage: 7 MG, QD
     Route: 048

REACTIONS (9)
  - Rash [Unknown]
  - Unevaluable event [Unknown]
  - Condition aggravated [Unknown]
  - Renal disorder [Unknown]
  - Pruritus [Unknown]
  - Protein urine [Unknown]
  - Alopecia [Unknown]
  - Systemic lupus erythematosus [Unknown]
  - Erythema [Unknown]

NARRATIVE: CASE EVENT DATE: 2019
